FAERS Safety Report 8332583-3 (Version None)
Quarter: 2012Q2

REPORT INFORMATION
  Report Type: 
  Country: None (occurrence: None)
  Receive Date: 20120503
  Receipt Date: 20120418
  Transmission Date: 20120825
  Serious: No
  Sender: FDA-Public Use
  Company Number: CN-JNJFOC-20120501726

PATIENT
  Sex: Male

DRUGS (3)
  1. FENTANYL [Suspect]
     Route: 062
     Dates: start: 20110120
  2. FENTANYL [Suspect]
     Indication: PAIN
     Route: 062
     Dates: start: 20110114, end: 20110117
  3. FENTANYL [Suspect]
     Route: 062
     Dates: start: 20110117, end: 20110120

REACTIONS (4)
  - INAPPROPRIATE SCHEDULE OF DRUG ADMINISTRATION [None]
  - PRURITUS [None]
  - RASH [None]
  - RASH MACULO-PAPULAR [None]
